FAERS Safety Report 5937675-1 (Version None)
Quarter: 2008Q4

REPORT INFORMATION
  Report Type: 
  Country: None (occurrence: None)
  Receive Date: 20081031
  Receipt Date: 20080402
  Transmission Date: 20090506
  Serious: No
  Sender: FDA-Public Use
  Company Number: US-BAYER-200811392BCC

PATIENT
  Sex: Female
  Weight: 112 kg

DRUGS (7)
  1. ALEVE [Suspect]
     Indication: ANALGESIA
     Dosage: UNIT DOSE: 220 MG
     Route: 048
  2. NEXIUM [Concomitant]
  3. FOSAMAX [Concomitant]
  4. VYTORIN [Concomitant]
  5. CALCIUM SUPPLEMENT [Concomitant]
  6. ASPIRIN [Concomitant]
  7. NAPROSEN [Concomitant]

REACTIONS (2)
  - ABDOMINAL DISCOMFORT [None]
  - DYSPEPSIA [None]
